FAERS Safety Report 18990633 (Version 1)
Quarter: 2021Q1

REPORT INFORMATION
  Report Type: Report from Study
  Country: US (occurrence: US)
  Receive Date: 20210310
  Receipt Date: 20210310
  Transmission Date: 20210420
  Serious: Yes (Death, Other)
  Sender: FDA-Public Use
  Company Number: US-BRISTOL-MYERS SQUIBB COMPANY-BMS-2020-095507

PATIENT
  Sex: Male

DRUGS (1)
  1. APIXABAN [Suspect]
     Active Substance: APIXABAN
     Indication: CARDIAC FAILURE CONGESTIVE
     Dosage: UNK
     Route: 065

REACTIONS (6)
  - Cardiomyopathy [Fatal]
  - Joint stiffness [Fatal]
  - Intentional product use issue [Unknown]
  - Cerebrovascular accident [Unknown]
  - Fibromuscular dysplasia [Fatal]
  - Dyspnoea [Unknown]

NARRATIVE: CASE EVENT DATE: 20201029
